FAERS Safety Report 6578759-7 (Version None)
Quarter: 2010Q1

REPORT INFORMATION
  Report Type: 
  Country: None (occurrence: None)
  Receive Date: 20100202
  Receipt Date: 20100127
  Transmission Date: 20100710
  Serious: Yes (Death)
  Sender: FDA-Public Use
  Company Number: 2010US000223

PATIENT
  Age: 21 Year
  Sex: Male

DRUGS (5)
  1. AMBISOME [Suspect]
     Indication: PNEUMONIA
     Dosage: 300 MG, UID/QD, IV NOS
     Route: 042
     Dates: start: 20091008, end: 20091018
  2. METOCLOPRAMIDE (METOCLOPRAMIDE) INJECTION [Suspect]
     Indication: VOMITING
     Dosage: 40 MG, UID/QD, IV NOS
     Route: 042
     Dates: start: 20091007, end: 20091018
  3. MEROPENEM (MEROPENEM) INJECTION [Suspect]
     Indication: PNEUMONIA
     Dosage: 1 G, TID, IV NOS
     Route: 042
     Dates: start: 20090924, end: 20091018
  4. VANCOMYCIN HYDROCHLORIDE [Suspect]
     Indication: PNEUMONIA
     Dosage: 1 G, BID, IV NOS
     Route: 042
     Dates: start: 20091011, end: 20091018
  5. MYCOPHENOLATE MOFETIL [Suspect]
     Indication: GRAFT VERSUS HOST DISEASE
     Dosage: 15 G, TID, ORAL
     Route: 048
     Dates: start: 20091007, end: 20091018

REACTIONS (2)
  - CONVULSION [None]
  - HYPOKALAEMIA [None]
